FAERS Safety Report 7111570-7 (Version None)
Quarter: 2010Q4

REPORT INFORMATION
  Report Type: 
  Country: None (occurrence: None)
  Receive Date: 20101118
  Receipt Date: 20100629
  Transmission Date: 20110411
  Serious: No
  Sender: FDA-Public Use
  Company Number: US-PFIZER INC-2010081573

PATIENT

DRUGS (1)
  1. ZYVOX [Suspect]
     Indication: STAPHYLOCOCCAL INFECTION
     Dosage: UNK

REACTIONS (4)
  - ANTIMICROBIAL SUSCEPTIBILITY TEST [None]
  - DRUG INEFFECTIVE [None]
  - MINIMUM INHIBITORY CONCENTRATION [None]
  - STAPHYLOCOCCAL INFECTION [None]
